FAERS Safety Report 4810593-8 (Version None)
Quarter: 2005Q4

REPORT INFORMATION
  Report Type: 
  Country: None (occurrence: None)
  Receive Date: 20051026
  Receipt Date: 20050922
  Transmission Date: 20060501
  Serious: Yes (Other)
  Sender: FDA-Public Use
  Company Number: SEWYE999122SEP05

PATIENT
  Age: 28 Year
  Sex: Female

DRUGS (2)
  1. ENBREL [Suspect]
     Indication: JUVENILE ARTHRITIS
     Route: 058
     Dates: start: 20050411, end: 20050801
  2. NAPROXEN [Concomitant]
     Dosage: WHEN NEEDED

REACTIONS (2)
  - BLOOD CREATININE INCREASED [None]
  - PUSTULAR PSORIASIS [None]
